FAERS Safety Report 4376493-5 (Version None)
Quarter: 2004Q2

REPORT INFORMATION
  Report Type: 
  Country: None (occurrence: None)
  Receive Date: 20040610
  Receipt Date: 20040527
  Transmission Date: 20050107
  Serious: Yes (Hospitalization, Other)
  Sender: FDA-Public Use
  Company Number: 2004S1001388

PATIENT
  Age: 34 Year
  Sex: Female
  Weight: 77.1115 kg

DRUGS (5)
  1. EXTENDED PHENYTOIN SODIUM [Suspect]
     Indication: GRAND MAL CONVULSION
     Dosage: 300MG BID, THE 600 MG X1, THE 200 MG BID, ORAL
     Route: 048
     Dates: start: 20021001, end: 20040521
  2. EXTENDED PHENYTOIN SODIUM [Suspect]
     Indication: PETIT MAL EPILEPSY
     Dosage: 300MG BID, THE 600 MG X1, THE 200 MG BID, ORAL
     Route: 048
     Dates: start: 20021001, end: 20040521
  3. TEGRETOL [Suspect]
     Indication: GRAND MAL CONVULSION
     Dosage: 600MG BID, ORAL
     Route: 048
     Dates: start: 19730101
  4. TEGRETOL [Suspect]
     Indication: PETIT MAL EPILEPSY
     Dosage: 600MG BID, ORAL
     Route: 048
     Dates: start: 19730101
  5. CARBAMAZEPINE [Concomitant]

REACTIONS (15)
  - ABASIA [None]
  - BALANCE DISORDER [None]
  - CEREBROVASCULAR ACCIDENT [None]
  - CONDITION AGGRAVATED [None]
  - CONVULSION [None]
  - DRUG LEVEL ABOVE THERAPEUTIC [None]
  - DRUG LEVEL DECREASED [None]
  - DRUG WITHDRAWAL SYNDROME [None]
  - DYSSTASIA [None]
  - HEADACHE [None]
  - HYPOAESTHESIA [None]
  - IMPAIRED WORK ABILITY [None]
  - METABOLIC DISORDER [None]
  - PHARMACEUTICAL PRODUCT COMPLAINT [None]
  - SPEECH DISORDER [None]
